FAERS Safety Report 21964973 (Version 2)
Quarter: 2023Q1

REPORT INFORMATION
  Report Type: Spontaneous
  Country: JP (occurrence: JP)
  Receive Date: 20230207
  Receipt Date: 20230222
  Transmission Date: 20230417
  Serious: No
  Sender: FDA-Public Use
  Company Number: JP-SAKK-2023SA042025AA

PATIENT
  Age: 85 Year
  Sex: Female

DRUGS (1)
  1. ENJAYMO [Suspect]
     Active Substance: SUTIMLIMAB-JOME
     Indication: Cold type haemolytic anaemia
     Dosage: DAILY DOSE: 6.5 G
     Route: 041
     Dates: start: 20221205, end: 20230124

REACTIONS (1)
  - No adverse event [Unknown]
